FAERS Safety Report 6242401-5 (Version None)
Quarter: 2009Q2

REPORT INFORMATION
  Report Type: 
  Country: None (occurrence: None)
  Receive Date: 20090622
  Receipt Date: 20090622
  Transmission Date: 20091009
  Serious: Yes (Disabling)
  Sender: FDA-Public Use
  Company Number: None

PATIENT
  Age: 67 Year
  Sex: Female
  Weight: 98 kg

DRUGS (1)
  1. ARIXTRA [Suspect]
     Indication: CARDIAC DISORDER
     Dosage: 2.5MG/0.5ML ONCE A DAY SQ
     Route: 058
     Dates: start: 20090617, end: 20090617

REACTIONS (1)
  - PLATELET COUNT DECREASED [None]
